FAERS Safety Report 4782506-9 (Version None)
Quarter: 2005Q3

REPORT INFORMATION
  Report Type: 
  Country: None (occurrence: None)
  Receive Date: 20050929
  Receipt Date: 20050118
  Transmission Date: 20060218
  Serious: No
  Sender: FDA-Public Use
  Company Number: 395948

PATIENT
  Age: 77 Year
  Sex: Male

DRUGS (8)
  1. COREG [Suspect]
     Dosage: 3.125MG TWICE PER DAY
     Route: 048
     Dates: start: 20031101
  2. DIGITEK [Concomitant]
  3. VICODIN [Concomitant]
  4. RESTORIL [Concomitant]
  5. DEXAMETHASONE [Concomitant]
  6. PREVACID [Concomitant]
  7. ALLOPURINOL [Concomitant]
  8. FERROUS SULFATE [Concomitant]

REACTIONS (2)
  - DYSPHONIA [None]
  - SPEECH DISORDER [None]
